FAERS Safety Report 5110045-4 (Version None)
Quarter: 2006Q3

REPORT INFORMATION
  Report Type: 
  Country: None (occurrence: None)
  Receive Date: 20060731
  Receipt Date: 20060403
  Transmission Date: 20061208
  Serious: No
  Sender: FDA-Public Use
  Company Number: 2006PV011424

PATIENT
  Age: 53 Year
  Sex: Female
  Weight: 90.7194 kg

DRUGS (3)
  1. BYETTA [Suspect]
     Indication: HYPERINSULINAEMIA
     Dosage: 5 MCG;BID;SC
     Route: 058
     Dates: start: 20060201
  2. GLUCOPHAGE XR [Concomitant]
  3. ACTOS /USA/ [Concomitant]

REACTIONS (5)
  - CONTUSION [None]
  - DECREASED APPETITE [None]
  - DRUG INEFFECTIVE FOR UNAPPROVED INDICATION [None]
  - THERAPEUTIC RESPONSE UNEXPECTED [None]
  - WEIGHT DECREASED [None]
